FAERS Safety Report 17952695 (Version 3)
Quarter: 2020Q3

REPORT INFORMATION
  Report Type: Report from Study
  Country: CA (occurrence: CA)
  Receive Date: 20200626
  Receipt Date: 20200709
  Transmission Date: 20201103
  Serious: Yes (Hospitalization)
  Sender: FDA-Public Use
  Company Number: PHHY2017CA036377

PATIENT
  Sex: Female

DRUGS (4)
  1. COSENTYX [Suspect]
     Active Substance: SECUKINUMAB
     Dosage: 300 MG, QW2
     Route: 058
  2. COSENTYX [Suspect]
     Active Substance: SECUKINUMAB
     Dosage: 300 MG, QMO
     Route: 058
     Dates: start: 20170525
  3. COSENTYX [Suspect]
     Active Substance: SECUKINUMAB
     Indication: PSORIASIS
     Dosage: 300 MG, QW
     Route: 058
     Dates: start: 20170225
  4. COSENTYX [Suspect]
     Active Substance: SECUKINUMAB
     Dosage: 300 MG, QMO
     Route: 058
     Dates: start: 20170325

REACTIONS (20)
  - Nausea [Recovered/Resolved]
  - Skin discolouration [Unknown]
  - Drug ineffective [Unknown]
  - Pancreatitis [Unknown]
  - Malaise [Unknown]
  - Peripheral coldness [Unknown]
  - Dysuria [Unknown]
  - Ocular hyperaemia [Unknown]
  - Dyspnoea [Unknown]
  - Burning sensation [Unknown]
  - Pain [Unknown]
  - Cough [Unknown]
  - Bone pain [Unknown]
  - Hypoaesthesia [Unknown]
  - Tremor [Unknown]
  - Muscle spasms [Unknown]
  - Inappropriate schedule of product administration [Unknown]
  - Urinary tract infection [Unknown]
  - Throat irritation [Unknown]
  - Genital discomfort [Unknown]
